FAERS Safety Report 16084824 (Version 1)
Quarter: 2019Q1

REPORT INFORMATION
  Report Type: Spontaneous
  Country: US (occurrence: US)
  Receive Date: 20190318
  Receipt Date: 20190318
  Transmission Date: 20190418
  Serious: Yes (Hospitalization)
  Sender: FDA-Public Use
  Company Number: US-AVADEL SPECIALTY PHARMACEUTICALS, LLC-2018AVA00560

PATIENT
  Sex: Female

DRUGS (2)
  1. DESMOPRESSIN ACETATE. [Suspect]
     Active Substance: DESMOPRESSIN ACETATE
     Dosage: 0.5 ?G
     Route: 045
  2. DESMOPRESSIN ACETATE. [Suspect]
     Active Substance: DESMOPRESSIN ACETATE
     Dosage: 0.15 ?G

REACTIONS (5)
  - Hyponatraemia [Unknown]
  - Overdose [Recovered/Resolved]
  - Vomiting [Unknown]
  - Muscle spasms [Unknown]
  - Hallucination [Unknown]
